FAERS Safety Report 20169130 (Version 1)
Quarter: 2021Q4

REPORT INFORMATION
  Report Type: Spontaneous
  Country: US (occurrence: None)
  Receive Date: 20211209
  Receipt Date: 20211209
  Transmission Date: 20220303
  Serious: Yes (Death, Hospitalization)
  Sender: FDA-Public Use
  Company Number: None

PATIENT
  Age: 61 Year
  Sex: Male
  Weight: 104 kg

DRUGS (13)
  1. CISPLATIN [Suspect]
     Active Substance: CISPLATIN
     Dates: end: 20211130
  2. ALOH/MGOH/SIMTH EXTRA STRENGTH [Concomitant]
  3. CARVEDILOL [Concomitant]
     Active Substance: CARVEDILOL
  4. DIPHENHYDRAMINE HYDROCHLORIDE [Concomitant]
     Active Substance: DIPHENHYDRAMINE HYDROCHLORIDE
  5. DOCUSATE [Concomitant]
     Active Substance: DOCUSATE
  6. DOXEPIN HCL [Concomitant]
     Active Substance: DOXEPIN HYDROCHLORIDE
  7. INSULIN NOS [Concomitant]
     Active Substance: INSULIN NOS
  8. LIDOCAINE HYDROCHLORIDE [Concomitant]
     Active Substance: LIDOCAINE HYDROCHLORIDE
  9. LORAZEPAM [Concomitant]
     Active Substance: LORAZEPAM
  10. LOSARTAN [Concomitant]
     Active Substance: LOSARTAN
  11. MORPHINE LIQUID [Concomitant]
  12. NAPROXEN [Concomitant]
     Active Substance: NAPROXEN
  13. ONDANSETRON HCL [Concomitant]
     Active Substance: ONDANSETRON HYDROCHLORIDE

REACTIONS (7)
  - Fatigue [None]
  - Sudden death [None]
  - Mucosal inflammation [None]
  - Lymphopenia [None]
  - White blood cell count decreased [None]
  - Neutrophil count [None]
  - Odynophagia [None]

NARRATIVE: CASE EVENT DATE: 20211207
